FAERS Safety Report 13083344 (Version 1)
Quarter: 2017Q1

REPORT INFORMATION
  Report Type: Spontaneous
  Country: US (occurrence: US)
  Receive Date: 20170104
  Receipt Date: 20170104
  Transmission Date: 20170428
  Serious: No
  Sender: FDA-Public Use
  Company Number: US-JNJFOC-20161221628

PATIENT
  Age: 49 Year
  Sex: Female
  Weight: 52.16 kg

DRUGS (2)
  1. ZYRTEC [Suspect]
     Active Substance: CETIRIZINE HYDROCHLORIDE
     Indication: RHINORRHOEA
     Dosage: 1 TABLET, ONCE
     Route: 048
     Dates: start: 20161216, end: 20161216
  2. ZYRTEC [Suspect]
     Active Substance: CETIRIZINE HYDROCHLORIDE
     Indication: EYE PRURITUS
     Dosage: 1 TABLET, ONCE
     Route: 048
     Dates: start: 20161216, end: 20161216

REACTIONS (4)
  - Dehydration [Recovered/Resolved]
  - Feeling abnormal [Recovered/Resolved]
  - Thirst [Recovered/Resolved]
  - Disturbance in attention [Recovered/Resolved]

NARRATIVE: CASE EVENT DATE: 20161216
